FAERS Safety Report 5768166-9 (Version None)
Quarter: 2008Q2

REPORT INFORMATION
  Report Type: 
  Country: None (occurrence: None)
  Receive Date: 20080601
  Receipt Date: 20080226
  Transmission Date: 20081010
  Serious: No
  Sender: FDA-Public Use
  Company Number: US200802006323

PATIENT
  Age: 43 Year
  Sex: Female

DRUGS (1)
  1. BYETTA [Suspect]
     Dosage: SEE IMAGE
     Route: 058
     Dates: start: 20070901

REACTIONS (1)
  - BLOOD GLUCOSE INCREASED [None]
